FAERS Safety Report 24411417 (Version 1)
Quarter: 2024Q4

REPORT INFORMATION
  Report Type: Spontaneous
  Country: US (occurrence: None)
  Receive Date: 20241007
  Receipt Date: 20241007
  Transmission Date: 20250114
  Serious: Yes (Hospitalization)
  Sender: Public
  Company Number: None

PATIENT
  Sex: Female

DRUGS (10)
  1. ORENCIA [Suspect]
     Active Substance: ABATACEPT
     Indication: Rheumatoid arthritis
     Route: 058
     Dates: start: 20220920
  2. ALPRAZOLAM TAB 0.5MG [Concomitant]
  3. APAP/CODEINE TAB 300-30MG [Concomitant]
  4. FLUOXETINE CAP 20MG [Concomitant]
  5. FLUOXETINE CAP 40MG [Concomitant]
  6. HYDROXYCHLOR TAB 200MG [Concomitant]
  7. MULTIVITAMIN TAB [Concomitant]
  8. PREDNISONE TAB 5MG [Concomitant]
  9. SUMATRIPTAN TAB 100 MG [Concomitant]
  10. TRAZODONE TAB 100MG [Concomitant]

REACTIONS (2)
  - Drug ineffective [None]
  - Therapy interrupted [None]
